FAERS Safety Report 24777445 (Version 1)
Quarter: 2024Q4

REPORT INFORMATION
  Report Type: Spontaneous
  Country: CN (occurrence: CN)
  Receive Date: 20241226
  Receipt Date: 20241226
  Transmission Date: 20250115
  Serious: Yes (Hospitalization)
  Sender: PFIZER
  Company Number: CN-PFIZER INC-PV202400165852

PATIENT
  Age: 78 Year
  Sex: Female
  Weight: 70 kg

DRUGS (4)
  1. AROMASIN [Suspect]
     Active Substance: EXEMESTANE
     Indication: Breast cancer
     Dosage: 25 MG, 1X/DAY
     Route: 048
     Dates: start: 20241107, end: 20241209
  2. IBRANCE [Suspect]
     Active Substance: PALBOCICLIB
     Indication: Breast cancer
     Dosage: 125 MG, 1X/DAY
     Route: 048
     Dates: start: 20241107, end: 20241209
  3. ACLASTA [Suspect]
     Active Substance: ZOLEDRONIC ACID
     Indication: Breast cancer
     Dosage: 4 MG, 1X/DAY
     Route: 041
     Dates: start: 20241107, end: 20241107
  4. SODIUM CHLORIDE [Concomitant]
     Active Substance: SODIUM CHLORIDE
     Indication: Vehicle solution use
     Dosage: 100 ML, 1X/DAY
     Route: 041
     Dates: start: 20241107, end: 20241107

REACTIONS (1)
  - Myelosuppression [Unknown]

NARRATIVE: CASE EVENT DATE: 20241209
